FAERS Safety Report 25521917 (Version 1)
Quarter: 2025Q3

REPORT INFORMATION
  Report Type: Report from Study
  Country: US (occurrence: US)
  Receive Date: 20250706
  Receipt Date: 20250706
  Transmission Date: 20251020
  Serious: Yes (Other)
  Sender: ABBVIE
  Company Number: US-ABBVIE-6355665

PATIENT
  Age: 73 Year
  Sex: Male

DRUGS (1)
  1. VYALEV [Suspect]
     Active Substance: FOSCARBIDOPA\FOSLEVODOPA
     Indication: Parkinson^s disease
     Route: 058
     Dates: start: 20250108

REACTIONS (10)
  - Deep brain stimulation [Unknown]
  - Lethargy [Unknown]
  - Catheter site pain [Recovered/Resolved]
  - Nightmare [Unknown]
  - Balance disorder [Unknown]
  - Catheter site induration [Not Recovered/Not Resolved]
  - Tremor [Not Recovered/Not Resolved]
  - Skin abrasion [Not Recovered/Not Resolved]
  - Device issue [Unknown]
  - Fall [Unknown]

NARRATIVE: CASE EVENT DATE: 20250101
